FAERS Safety Report 24191237 (Version 1)
Quarter: 2024Q3

REPORT INFORMATION
  Report Type: Spontaneous
  Country: CA (occurrence: CA)
  Receive Date: 20240808
  Receipt Date: 20240808
  Transmission Date: 20241017
  Serious: Yes (Hospitalization)
  Sender: TEVA
  Company Number: CA-TEVA-VS-3227560

PATIENT
  Age: 80 Year
  Sex: Female

DRUGS (8)
  1. CEPHALEXIN [Suspect]
     Active Substance: CEPHALEXIN
     Indication: Cellulitis
     Dosage: DESCRIPTION:TEVA-CEPHALEXIN
     Route: 048
  2. CEFTRIAXONE SODIUM [Suspect]
     Active Substance: CEFTRIAXONE SODIUM
     Indication: Cellulitis
     Dosage: DESCRIPTION: CEFTRIAXONE SODIUM FOR INJECTION BP, DOSE FORM: POWDER FOR SOLUTION INTRAMUSCULAR
     Route: 042
  3. CEFAZOLIN [Suspect]
     Active Substance: CEFAZOLIN
     Indication: Cellulitis
     Dosage: DESCRIPTION: CEFAZOLIN FOR INJECTION USP, DOSE FORM: POWDER FOR SOLUTION INTRAMUSCULAR
     Route: 042
  4. NADOLOL [Concomitant]
     Active Substance: NADOLOL
     Indication: Product used for unknown indication
     Route: 065
  5. ASPIRIN [Concomitant]
     Active Substance: ASPIRIN
     Indication: Product used for unknown indication
     Route: 065
  6. OLODATEROL HYDROCHLORIDE\TIOTROPIUM BROMIDE MONOHYDRATE [Concomitant]
     Active Substance: OLODATEROL HYDROCHLORIDE\TIOTROPIUM BROMIDE MONOHYDRATE
     Indication: Product used for unknown indication
     Dosage: DESCRIPTION: INSPIOLTO RESPIMAT FOR ORAL INHALATION. WITH INSPIOLTO RESPIMAT INHALER, DOSE FORM: ...
     Route: 065
  7. AMLODIPINE [Concomitant]
     Active Substance: AMLODIPINE BESYLATE
     Indication: Product used for unknown indication
     Route: 065
  8. ENOXAPARIN [Concomitant]
     Active Substance: ENOXAPARIN
     Indication: Product used for unknown indication
     Route: 065

REACTIONS (1)
  - Clostridium test positive [Unknown]
